FAERS Safety Report 10056214 (Version 3)
Quarter: 2014Q4

REPORT INFORMATION
  Report Type: Spontaneous
  Country: US (occurrence: US)
  Receive Date: 20140403
  Receipt Date: 20141020
  Transmission Date: 20150528
  Serious: Yes (Hospitalization)
  Sender: FDA-Public Use
  Company Number: US-BAYER-2014-047395

PATIENT
  Age: 25 Year
  Sex: Female
  Weight: 73 kg

DRUGS (4)
  1. MIRENA [Suspect]
     Active Substance: LEVONORGESTREL
     Indication: ENDOMETRIOSIS
  2. MIRENA [Suspect]
     Active Substance: LEVONORGESTREL
     Indication: MENORRHAGIA
  3. MIRENA [Suspect]
     Active Substance: LEVONORGESTREL
     Indication: CONTRACEPTION
     Dosage: 20 MCG/24HR, CONT
     Route: 015
     Dates: start: 20110714, end: 20120515
  4. XANAX [Concomitant]
     Active Substance: ALPRAZOLAM
     Indication: ANXIETY
     Dosage: UNK
     Dates: start: 2008

REACTIONS (12)
  - Embedded device [None]
  - Abdominal pain [None]
  - Dysfunctional uterine bleeding [None]
  - Off label use [None]
  - Depression [None]
  - Pelvic pain [None]
  - Metrorrhagia [None]
  - Menstruation irregular [None]
  - Anxiety [None]
  - Emotional distress [None]
  - Injury [None]
  - Device issue [None]

NARRATIVE: CASE EVENT DATE: 201110
